FAERS Safety Report 19483035 (Version 1)
Quarter: 2021Q3

REPORT INFORMATION
  Report Type: Spontaneous
  Country: US (occurrence: US)
  Receive Date: 20210701
  Receipt Date: 20210701
  Transmission Date: 20211014
  Serious: No
  Sender: FDA-Public Use
  Company Number: US-MATRIXX INITIATIVES, INC.-2113370

PATIENT
  Age: 36 Year
  Sex: Female
  Weight: 62.73 kg

DRUGS (1)
  1. ZICAM COLD REMEDY NASAL SWABS (HOMEOPATHICS) [Suspect]
     Active Substance: HOMEOPATHICS\ZINC ACETATE\ZINC GLUCONATE
     Indication: NASOPHARYNGITIS
     Route: 045
     Dates: start: 20210626, end: 20210628

REACTIONS (1)
  - Anosmia [Not Recovered/Not Resolved]

NARRATIVE: CASE EVENT DATE: 20210629
